FAERS Safety Report 12585915 (Version 2)
Quarter: 2016Q3

REPORT INFORMATION
  Report Type: Spontaneous
  Country: NL (occurrence: NL)
  Receive Date: 20160725
  Receipt Date: 20160812
  Transmission Date: 20161109
  Serious: Yes (Death)
  Sender: FDA-Public Use
  Company Number: NL-ACTELION-A-CH2016-139404

PATIENT
  Age: 42 Year
  Sex: Male

DRUGS (5)
  1. DIGOXIN. [Concomitant]
     Active Substance: DIGOXIN
  2. ALLOPURINOL. [Concomitant]
     Active Substance: ALLOPURINOL
  3. FUROSEMID [Concomitant]
     Active Substance: FUROSEMIDE
  4. OPSUMIT [Suspect]
     Active Substance: MACITENTAN
     Indication: PULMONARY ARTERIAL HYPERTENSION
     Dosage: 10 MG, QD
     Route: 048
     Dates: start: 20140322, end: 20160627
  5. THYRAX [Concomitant]
     Active Substance: LEVOTHYROXINE

REACTIONS (2)
  - Sudden cardiac death [Fatal]
  - Sudden death [Fatal]

NARRATIVE: CASE EVENT DATE: 20160627
